FAERS Safety Report 5463951-5 (Version None)
Quarter: 2007Q3

REPORT INFORMATION
  Report Type: 
  Country: None (occurrence: None)
  Receive Date: 20070921
  Receipt Date: 20070913
  Transmission Date: 20080115
  Serious: Yes (Other)
  Sender: FDA-Public Use
  Company Number: PHBS2007JP14109

PATIENT
  Age: 59 Year
  Sex: Female
  Weight: 43 kg

DRUGS (3)
  1. ZOMETA [Suspect]
     Indication: METASTASES TO BONE
     Dosage: 4 MG, QD
     Route: 042
     Dates: start: 20060620, end: 20070626
  2. TAXOL [Concomitant]
     Indication: BREAST CANCER
     Dosage: 90 MG, UNK
     Route: 042
     Dates: start: 20060606, end: 20070828
  3. HERCEPTIN [Concomitant]
     Indication: BREAST CANCER
     Dosage: 114 MG, UNK
     Route: 042
     Dates: start: 20060606

REACTIONS (8)
  - BLOOD CALCIUM INCREASED [None]
  - ERYTHEMA [None]
  - HAEMATOCRIT DECREASED [None]
  - HAEMOGLOBIN DECREASED [None]
  - OSTEOMYELITIS [None]
  - PAIN IN JAW [None]
  - PLATELET COUNT INCREASED [None]
  - STOMATITIS [None]
